FAERS Safety Report 9736811 (Version 2)
Quarter: 2013Q4

REPORT INFORMATION
  Report Type: Spontaneous
  Country: US (occurrence: US)
  Receive Date: 20131206
  Receipt Date: 20131212
  Transmission Date: 20140711
  Serious: No
  Sender: FDA-Public Use
  Company Number: US-BIOGENIDEC-2013BI091037

PATIENT
  Age: 67 Year
  Sex: Male

DRUGS (10)
  1. TECFIDERA [Suspect]
     Indication: MULTIPLE SCLEROSIS
     Route: 048
     Dates: start: 20130911
  2. TECFIDERA [Suspect]
     Indication: MULTIPLE SCLEROSIS
     Route: 048
     Dates: start: 20131002
  3. PRADAXA [Concomitant]
  4. SPIRONOLACTONE [Concomitant]
  5. LEVOTHYROXINE [Concomitant]
  6. FLOMAX [Concomitant]
  7. CARVEDILOL [Concomitant]
  8. DIGOXIN [Concomitant]
  9. FUROSEMIDE [Concomitant]
  10. LEVOTHROID [Concomitant]

REACTIONS (3)
  - Paraesthesia [Unknown]
  - Flushing [Unknown]
  - Rash [Unknown]
